FAERS Safety Report 8676305 (Version 3)
Quarter: 2012Q4

REPORT INFORMATION
  Report Type: 
  Country: US (occurrence: US)
  Receive Date: 20120720
  Receipt Date: 20121101
  Transmission Date: 20130627
  Serious: Yes (Hospitalization)
  Sender: FDA-Public Use
  Company Number: US-GILEAD-2012-0058156

PATIENT
  Sex: Female

DRUGS (3)
  1. LETAIRIS [Suspect]
     Indication: PULMONARY HYPERTENSION
     Dosage: 5 mg, UNK
     Route: 048
     Dates: start: 20110524
  2. LETAIRIS [Suspect]
     Indication: PORTOPULMONARY HYPERTENSION
  3. REMODULIN [Concomitant]

REACTIONS (3)
  - Gastric lavage [Unknown]
  - Ascites [Unknown]
  - Fluid retention [Unknown]
